FAERS Safety Report 8180026-5 (Version None)
Quarter: 2012Q1

REPORT INFORMATION
  Report Type: 
  Country: None (occurrence: None)
  Receive Date: 20120302
  Receipt Date: 20120229
  Transmission Date: 20120608
  Serious: Yes (Hospitalization, Other)
  Sender: FDA-Public Use
  Company Number: CA-ABBOTT-12P-028-0910004-00

PATIENT
  Age: 60 Year
  Sex: Female
  Weight: 48 kg

DRUGS (6)
  1. VALPROATE SODIUM [Suspect]
     Indication: PRODUCT USED FOR UNKNOWN INDICATION
     Dosage: ENTERIC COATED
  2. AMLODIPINE [Concomitant]
     Indication: PRODUCT USED FOR UNKNOWN INDICATION
  3. GLYBURIDE [Concomitant]
     Indication: PRODUCT USED FOR UNKNOWN INDICATION
  4. QUETIAPINE [Concomitant]
     Indication: PRODUCT USED FOR UNKNOWN INDICATION
  5. CLOZARIL [Suspect]
     Indication: PRODUCT USED FOR UNKNOWN INDICATION
     Dosage: 1 EVERY 1 DAY
  6. CLOZARIL [Suspect]
     Dosage: 2 EVERY 1 DAY
     Route: 048

REACTIONS (4)
  - PNEUMONIA [None]
  - RESPIRATORY ARREST [None]
  - PYREXIA [None]
  - CONVULSION [None]
